FAERS Safety Report 8403626-3 (Version None)
Quarter: 2012Q2

REPORT INFORMATION
  Report Type: 
  Country: None (occurrence: None)
  Receive Date: 20120601
  Receipt Date: 20120522
  Transmission Date: 20120825
  Serious: No
  Sender: FDA-Public Use
  Company Number: US-B.I. PHARMACEUTICALS,INC./RIDGEFIELD-2012-BP-11390BP

PATIENT
  Age: 72 Year
  Sex: Male

DRUGS (6)
  1. GLYBURIDE [Concomitant]
     Indication: DIABETES MELLITUS
  2. PRADAXA [Suspect]
     Indication: ATRIAL FIBRILLATION
     Dosage: 300 MG
     Route: 048
     Dates: start: 20120401, end: 20120518
  3. AMLODIPINE [Concomitant]
     Indication: HYPERTENSION
  4. SOTALOL HCL [Concomitant]
     Indication: ATRIAL FIBRILLATION
  5. ENALAPRIL MALEATE [Concomitant]
     Indication: HYPERTENSION
  6. METFORMIN HCL [Concomitant]
     Indication: DIABETES MELLITUS

REACTIONS (2)
  - MELAENA [None]
  - CYSTITIS [None]
